FAERS Safety Report 11806564 (Version 1)
Quarter: 2015Q4

REPORT INFORMATION
  Report Type: Spontaneous
  Country: JP (occurrence: JP)
  Receive Date: 20151207
  Receipt Date: 20151207
  Transmission Date: 20160305
  Serious: Yes (Other)
  Sender: FDA-Public Use
  Company Number: JP-GLAXOSMITHKLINE-JP2015JPN171021

PATIENT
  Age: 85 Year
  Sex: Male

DRUGS (3)
  1. HACHIMIJIOGAN [Concomitant]
     Active Substance: HERBALS
     Dosage: UNK
  2. URIEF [Concomitant]
     Active Substance: SILODOSIN
     Dosage: UNK
  3. AVOLVE [Suspect]
     Active Substance: DUTASTERIDE
     Dosage: 0.5 MG, QD
     Route: 048

REACTIONS (1)
  - Hepatic function abnormal [Unknown]
